FAERS Safety Report 11453305 (Version 2)
Quarter: 2016Q3

REPORT INFORMATION
  Report Type: Spontaneous
  Country: US (occurrence: US)
  Receive Date: 20150903
  Receipt Date: 20160729
  Transmission Date: 20161109
  Serious: Yes (Other)
  Sender: FDA-Public Use
  Company Number: US-PFIZER INC-2015292906

PATIENT
  Age: 53 Year
  Sex: Male

DRUGS (9)
  1. POLYETHYLENE [Concomitant]
     Active Substance: HIGH DENSITY POLYETHYLENE
     Indication: CONSTIPATION
     Dosage: UNK
     Dates: start: 2012
  2. AMLODIPINE BESYLATE. [Concomitant]
     Active Substance: AMLODIPINE BESYLATE
     Indication: HYPERTENSION
     Dosage: UNK
     Dates: start: 2000
  3. DEPO-TESTOSTERONE [Suspect]
     Active Substance: TESTOSTERONE CYPIONATE
     Indication: HORMONE REPLACEMENT THERAPY
     Dosage: UNK, MONTHLY (ONCE PER MONTH)
     Dates: start: 201209, end: 201304
  4. DEPO-TESTOSTERONE [Suspect]
     Active Substance: TESTOSTERONE CYPIONATE
     Dosage: UNK, MONTHLY (ONCE PER MONTH)
     Dates: start: 201211, end: 201401
  5. NORVASC [Concomitant]
     Active Substance: AMLODIPINE BESYLATE
     Indication: HYPERTENSION
     Dosage: UNK
     Dates: start: 199911
  6. ANDROGEL [Suspect]
     Active Substance: TESTOSTERONE
     Indication: HORMONE REPLACEMENT THERAPY
     Dosage: UNK, DAILY (MORE THAN ONCE PER DAY)
     Dates: start: 200806, end: 200807
  7. ANDRODERM [Suspect]
     Active Substance: TESTOSTERONE
     Indication: HORMONE REPLACEMENT THERAPY
     Dosage: UNK
     Dates: start: 201107, end: 201303
  8. AMITIZA [Concomitant]
     Active Substance: LUBIPROSTONE
     Indication: CONSTIPATION
     Dosage: UNK
     Dates: start: 2012
  9. OXYCONTIN [Concomitant]
     Active Substance: OXYCODONE HYDROCHLORIDE
     Indication: BACK PAIN
     Dosage: UNK
     Dates: start: 199911

REACTIONS (9)
  - Deep vein thrombosis [Unknown]
  - Heart rate increased [Unknown]
  - Vasodilatation [Not Recovered/Not Resolved]
  - Thrombosis [Unknown]
  - Abdominal distension [Unknown]
  - Pruritus [Unknown]
  - Obstruction gastric [Unknown]
  - Contusion [Unknown]
  - Erythema [Unknown]

NARRATIVE: CASE EVENT DATE: 20140102
